FAERS Safety Report 7868125-6 (Version None)
Quarter: 2011Q4

REPORT INFORMATION
  Report Type: 
  Country: None (occurrence: None)
  Receive Date: 20111028
  Receipt Date: 20111014
  Transmission Date: 20120403
  Serious: Yes (Hospitalization, Other)
  Sender: FDA-Public Use
  Company Number: US-ELI_LILLY_AND_COMPANY-US201106001078

PATIENT
  Sex: Male
  Weight: 65.76 kg

DRUGS (11)
  1. TASISULAM SODIUM [Suspect]
     Dosage: 1368 MG, UNK
     Route: 042
     Dates: start: 20100726
  2. PROSTAT [Concomitant]
     Indication: MEDICAL DIET
     Dosage: UNK
     Dates: start: 20100915
  3. PAXIL CR [Concomitant]
     Indication: ANXIETY
     Dosage: 25 MG, UNK
     Dates: start: 20100624
  4. ZANTAC [Concomitant]
     Indication: PROPHYLAXIS
     Dosage: 300 MG, UNK
     Route: 048
     Dates: start: 20100624
  5. PEMETREXED [Suspect]
     Indication: ADENOCARCINOMA PANCREAS
     Dosage: 375 MG/M2, UNK
     Route: 042
     Dates: start: 20100701
  6. TASISULAM SODIUM [Suspect]
     Indication: ADENOCARCINOMA PANCREAS
     Dosage: 1798 MG, UNK
     Route: 042
     Dates: start: 20100628
  7. OXYCODONE AND ACETAMINOPHEN [Concomitant]
     Indication: PAIN
     Dosage: UNK, PRN
     Dates: start: 20100624
  8. PANCRELIPASE [Concomitant]
     Indication: MEDICAL DIET
     Dosage: UNK
     Dates: start: 20100709
  9. DEXAMETHASONE [Concomitant]
     Indication: PROPHYLAXIS
     Dosage: 4 MG, UNK
     Route: 048
     Dates: start: 20100624
  10. VITAMIN B-12 [Concomitant]
     Indication: PROPHYLAXIS
     Dosage: UNK
     Dates: start: 20100614
  11. FOLIC ACID [Concomitant]
     Indication: PROPHYLAXIS
     Dosage: 1 MG, UNK
     Route: 048
     Dates: start: 20100614

REACTIONS (3)
  - BLOOD ALKALINE PHOSPHATASE INCREASED [None]
  - ASPARTATE AMINOTRANSFERASE INCREASED [None]
  - ALANINE AMINOTRANSFERASE INCREASED [None]
